FAERS Safety Report 14297159 (Version 1)
Quarter: 2017Q4

REPORT INFORMATION
  Report Type: Other
  Country: US (occurrence: ES)
  Receive Date: 20171218
  Receipt Date: 20171218
  Transmission Date: 20180321
  Serious: Yes (Other)
  Sender: FDA-Public Use
  Company Number: ES-BRECKENRIDGE PHARMACEUTICAL, INC.-2037299

PATIENT
  Age: 80 Year
  Sex: Male

DRUGS (3)
  1. LEUPROLIDE ACETATE. [Concomitant]
     Active Substance: LEUPROLIDE ACETATE
  2. BICALUTAMIDE. [Concomitant]
     Active Substance: BICALUTAMIDE
  3. ZOLEDRONIC ACID [Suspect]
     Active Substance: ZOLEDRONIC ACID
     Indication: METASTASES TO BONE
     Route: 042

REACTIONS (11)
  - Metabolic acidosis [Unknown]
  - Hyperuricosuria [Recovering/Resolving]
  - Hyperphosphaturia [Recovered/Resolved]
  - Aminoaciduria [Recovered/Resolved]
  - Renal failure [Unknown]
  - Hypouricaemia [Unknown]
  - Proteinuria [Recovering/Resolving]
  - Tubulointerstitial nephritis [Unknown]
  - Glycosuria [Recovered/Resolved]
  - Fanconi syndrome [Unknown]
  - Renal tubular necrosis [Unknown]
